FAERS Safety Report 20990611 (Version 3)
Quarter: 2022Q3

REPORT INFORMATION
  Report Type: Other
  Country: DE (occurrence: None)
  Receive Date: 20220622
  Receipt Date: 20220901
  Transmission Date: 20221026
  Serious: No
  Sender: FDA-Public Use
  Company Number: DE-ROCHE-3120077

PATIENT
  Age: 49 Year
  Sex: Female
  Weight: 87 kg

DRUGS (12)
  1. OCRELIZUMAB [Suspect]
     Active Substance: OCRELIZUMAB
     Indication: Secondary progressive multiple sclerosis
     Route: 042
     Dates: start: 20180820, end: 20180911
  2. OCRELIZUMAB [Suspect]
     Active Substance: OCRELIZUMAB
     Route: 042
     Dates: start: 20190325
  3. BORNAPRINE HYDROCHLORIDE [Concomitant]
     Active Substance: BORNAPRINE HYDROCHLORIDE
     Indication: Pain
     Dosage: DEFINITION OF THE INTERVAL: AS REQUIRED
  4. AMANTADINE [Concomitant]
     Active Substance: AMANTADINE
     Indication: Fatigue
     Dosage: DEFINITION OF THE INTERVAL: AS REQUIRED
     Route: 048
     Dates: start: 20190613
  5. HYDROMORPHONE [Concomitant]
     Active Substance: HYDROMORPHONE
     Route: 048
  6. BACLOFEN [Concomitant]
     Active Substance: BACLOFEN
     Indication: Pain
     Route: 048
     Dates: start: 20200921
  7. CANNABIDIOL [Concomitant]
     Active Substance: CANNABIDIOL
     Indication: Prophylaxis
     Route: 048
     Dates: start: 202006
  8. ACETAMINOPHEN [Concomitant]
     Active Substance: ACETAMINOPHEN
     Indication: Prophylaxis
     Dosage: DEFINITION OF THE INTERVAL: AS REQUIRED
     Route: 048
  9. PFIZER-BIONTECH COVID-19 VACCINE [Concomitant]
     Active Substance: TOZINAMERAN
     Indication: COVID-19 immunisation
     Route: 030
     Dates: start: 20220504, end: 20220504
  10. BORNAPRINE [Concomitant]
     Active Substance: BORNAPRINE
     Indication: Hyperhidrosis
     Dosage: DEFINITION OF THE INTERVAL: AS REQUIRED
     Route: 048
     Dates: start: 20171020
  11. NABIXIMOLS [Concomitant]
     Active Substance: NABIXIMOLS
     Indication: Muscle spasticity
     Route: 048
     Dates: start: 20210212
  12. CIMETIDIN [Concomitant]
     Indication: Premedication
     Route: 042
     Dates: start: 20201019

REACTIONS (2)
  - Vitamin D deficiency [Unknown]
  - COVID-19 [Recovered/Resolved]

NARRATIVE: CASE EVENT DATE: 20220128
